FAERS Safety Report 7323105-4 (Version None)
Quarter: 2011Q1

REPORT INFORMATION
  Report Type: 
  Country: None (occurrence: None)
  Receive Date: 20110301
  Receipt Date: 20110207
  Transmission Date: 20110831
  Serious: Yes (Other)
  Sender: FDA-Public Use
  Company Number: US-BAYER-201020570NA

PATIENT
  Sex: Female
  Weight: 74.83 kg

DRUGS (2)
  1. UNCODEABLE ^UNCLASSIFIABLE^ [Concomitant]
     Dosage: UNK UNK, HS
     Route: 048
  2. YAZ [Suspect]
     Indication: PRODUCT USED FOR UNKNOWN INDICATION
     Dosage: AS USED DOSE: UNK
     Route: 048
     Dates: start: 20080601, end: 20080801

REACTIONS (9)
  - PARAESTHESIA ORAL [None]
  - PAIN [None]
  - HYPOAESTHESIA FACIAL [None]
  - MUSCLE TWITCHING [None]
  - FACIAL PAIN [None]
  - PARAESTHESIA [None]
  - NEUROPATHY PERIPHERAL [None]
  - EYE PAIN [None]
  - HEADACHE [None]
